FAERS Safety Report 16112105 (Version 1)
Quarter: 2019Q1

REPORT INFORMATION
  Report Type: Report from Study
  Country: CL (occurrence: CL)
  Receive Date: 20190325
  Receipt Date: 20190325
  Transmission Date: 20190418
  Serious: Yes (Hospitalization)
  Sender: FDA-Public Use
  Company Number: CL-BAUSCH-BL-2019-008860

PATIENT
  Age: 50 Year
  Sex: Female
  Weight: 64 kg

DRUGS (2)
  1. NORMIX [Suspect]
     Active Substance: RIFAXIMIN
     Indication: DIVERTICULUM INTESTINAL
     Dosage: ABOUT 1 AND HALF MONTHS AGO (2 DF EVERY 8 HOURS)
     Route: 048
  2. NORMIX [Suspect]
     Active Substance: RIFAXIMIN
     Indication: INTENTIONAL PRODUCT USE ISSUE

REACTIONS (1)
  - Foot fracture [Not Recovered/Not Resolved]

NARRATIVE: CASE EVENT DATE: 201902
